FAERS Safety Report 6662984-0 (Version None)
Quarter: 2010Q1

REPORT INFORMATION
  Report Type: 
  Country: None (occurrence: None)
  Receive Date: 20100322
  Receipt Date: 20100309
  Transmission Date: 20100710
  Serious: No
  Sender: FDA-Public Use
  Company Number: 2010-00326

PATIENT
  Age: 63 Year
  Sex: Male
  Weight: 97.5234 kg

DRUGS (1)
  1. ZICAM COLD REMEDY ORAL MIST [Suspect]
     Dosage: BID, 2 DOSES
     Dates: start: 20071101

REACTIONS (3)
  - AGEUSIA [None]
  - ANOSMIA [None]
  - HYPOAESTHESIA ORAL [None]
